FAERS Safety Report 5235105-9 (Version None)
Quarter: 2007Q1

REPORT INFORMATION
  Report Type: 
  Country: None (occurrence: None)
  Receive Date: 20070207
  Receipt Date: 20070123
  Transmission Date: 20070707
  Serious: Yes (Other)
  Sender: FDA-Public Use
  Company Number: S07-IRL-00526

PATIENT
  Age: 54 Year
  Sex: Female

DRUGS (2)
  1. LEXAPRO [Suspect]
     Dosage: 20 MG QD PO
     Route: 048
  2. XANAX [Concomitant]

REACTIONS (1)
  - LICHEN PLANUS [None]
